FAERS Safety Report 6267435-6 (Version None)
Quarter: 2009Q3

REPORT INFORMATION
  Report Type: 
  Country: None (occurrence: None)
  Receive Date: 20090710
  Receipt Date: 20090629
  Transmission Date: 20100115
  Serious: Yes (Hospitalization)
  Sender: FDA-Public Use
  Company Number: 2009-02660

PATIENT
  Age: 58 Year
  Sex: Male

DRUGS (1)
  1. VELCADE [Suspect]
     Indication: MULTIPLE MYELOMA
     Dates: start: 20090315

REACTIONS (4)
  - DIVERTICULUM INTESTINAL [None]
  - NECROTISING COLITIS [None]
  - PROCTITIS [None]
  - SIGMOIDITIS [None]
